FAERS Safety Report 13653607 (Version 8)
Quarter: 2017Q4

REPORT INFORMATION
  Report Type: Spontaneous
  Country: KR (occurrence: KR)
  Receive Date: 20170614
  Receipt Date: 20171208
  Transmission Date: 20180320
  Serious: Yes (Hospitalization, Other)
  Sender: FDA-Public Use
  Company Number: KR-009507513-1705KOR006216

PATIENT
  Age: 54 Year
  Sex: Male
  Weight: 58.9 kg

DRUGS (13)
  1. ALLOPURINOL. [Concomitant]
     Active Substance: ALLOPURINOL
     Indication: GOUT
     Dosage: 100 MG, THREE TIMES A DAY (TID)
     Route: 048
     Dates: start: 20170425, end: 20170504
  2. FOLIC ACID. [Concomitant]
     Active Substance: FOLIC ACID
     Indication: VITAMIN SUPPLEMENTATION
     Dosage: 1 MG, TWICE A DAY (BID)
     Route: 048
     Dates: start: 20170425
  3. TABAXIN [Suspect]
     Active Substance: PIPERACILLIN SODIUM\TAZOBACTAM SODIUM
     Indication: FEBRILE NEUTROPENIA
     Dosage: 4.5 G, TID
     Route: 042
     Dates: start: 20170513, end: 20170514
  4. NOVORAPID [Concomitant]
     Active Substance: INSULIN ASPART
     Dosage: 10 IU, QD
     Route: 042
     Dates: start: 20170429, end: 20170501
  5. B COMPLEX PLUS C [Concomitant]
     Indication: VITAMIN SUPPLEMENTATION
     Dosage: 1 TABLET, ONCE DAILY (QD)
     Route: 048
     Dates: start: 20170425
  6. B COMPLEX PLUS C [Concomitant]
     Indication: VITAMIN SUPPLEMENTATION
  7. NOXAFIL [Suspect]
     Active Substance: POSACONAZOLE
     Indication: ANTIFUNGAL PROPHYLAXIS
     Dosage: 300 MG, TWICE A DAY
     Route: 048
     Dates: start: 20170425, end: 20170425
  8. CIPROFLOXACIN. [Suspect]
     Active Substance: CIPROFLOXACIN
     Indication: PYREXIA
     Dosage: 500 MG, BID
     Route: 048
     Dates: start: 20170425, end: 20170427
  9. METRONIDAZOLE. [Suspect]
     Active Substance: METRONIDAZOLE
     Indication: FEBRILE NEUTROPENIA
     Dosage: 500 MG, TID
     Route: 048
     Dates: start: 20170515, end: 20170526
  10. NOVORAPID [Concomitant]
     Active Substance: INSULIN ASPART
     Dosage: 12 IU, QD
     Route: 042
     Dates: start: 20170502, end: 20170507
  11. NOXAFIL [Suspect]
     Active Substance: POSACONAZOLE
     Dosage: 300 MG, ONCE A DAY
     Route: 048
     Dates: start: 20170426, end: 20170526
  12. CYTARABINE. [Suspect]
     Active Substance: CYTARABINE
     Indication: ACUTE MYELOID LEUKAEMIA
     Dosage: 166 MG, QD
     Route: 042
     Dates: start: 20170428, end: 20170504
  13. NOVORAPID [Concomitant]
     Active Substance: INSULIN ASPART
     Indication: DIABETES MELLITUS
     Dosage: 14 IU, QD
     Route: 042
     Dates: start: 20170425, end: 20170426

REACTIONS (16)
  - Polyuria [Recovering/Resolving]
  - Insomnia [Recovering/Resolving]
  - Diarrhoea [Recovered/Resolved]
  - Aspartate aminotransferase increased [Recovered/Resolved]
  - Decreased appetite [Recovering/Resolving]
  - Pneumonia [Recovering/Resolving]
  - Polydipsia [Recovering/Resolving]
  - Pyrexia [Recovered/Resolved]
  - Alanine aminotransferase increased [Recovering/Resolving]
  - Febrile neutropenia [Recovering/Resolving]
  - Stomatitis [Recovering/Resolving]
  - Nausea [Recovered/Resolved]
  - Rash erythematous [Recovering/Resolving]
  - Pruritus [Recovering/Resolving]
  - Diarrhoea [Recovered/Resolved]
  - Nausea [Recovering/Resolving]

NARRATIVE: CASE EVENT DATE: 20170425
